FAERS Safety Report 6401856-3 (Version None)
Quarter: 2009Q4

REPORT INFORMATION
  Report Type: 
  Country: None (occurrence: None)
  Receive Date: 20091015
  Receipt Date: 20091005
  Transmission Date: 20100525
  Serious: Yes (Hospitalization)
  Sender: FDA-Public Use
  Company Number: DE-ELI_LILLY_AND_COMPANY-DE200910000668

PATIENT
  Age: 16 Year
  Sex: Male

DRUGS (4)
  1. STRATTERA [Suspect]
     Indication: ATTENTION DEFICIT/HYPERACTIVITY DISORDER
     Dosage: 60 MG, UNKNOWN
     Route: 048
     Dates: start: 20071101, end: 20091005
  2. ZYPREXA [Concomitant]
     Dosage: 10 MG, UNKNOWN
     Route: 065
     Dates: start: 20071110
  3. ZYPREXA [Concomitant]
     Dosage: 20 MG, UNKNOWN
     Route: 065
     Dates: start: 20090920
  4. LORAZEPAM [Concomitant]
     Dosage: UNK, UNKNOWN
     Route: 065

REACTIONS (3)
  - HOSPITALISATION [None]
  - LIVER FUNCTION TEST ABNORMAL [None]
  - LIVER SCAN ABNORMAL [None]
